FAERS Safety Report 16253405 (Version 2)
Quarter: 2019Q3

REPORT INFORMATION
  Report Type: Report from Study
  Country: US (occurrence: US)
  Receive Date: 20190430
  Receipt Date: 20190704
  Transmission Date: 20191004
  Serious: Yes (Death, Other)
  Sender: FDA-Public Use
  Company Number: US-009507513-1904USA010144

PATIENT
  Age: 75 Year
  Sex: Male

DRUGS (1)
  1. ZETIA [Suspect]
     Active Substance: EZETIMIBE
     Dosage: 10 MG, 1X A DAY; ROUTE REPORTED AS ^BY MOUTH^
     Route: 048
     Dates: start: 2000, end: 20190402

REACTIONS (2)
  - Cardiac arrest [Fatal]
  - Cold type haemolytic anaemia [Fatal]
